FAERS Safety Report 9670920 (Version 2)
Quarter: 2013Q4

REPORT INFORMATION
  Report Type: Report from Study
  Country: US (occurrence: US)
  Receive Date: 20131106
  Receipt Date: 20131217
  Transmission Date: 20140711
  Serious: Yes (Death, Hospitalization, Other)
  Sender: FDA-Public Use
  Company Number: PHEH2013US023165

PATIENT
  Age: 18 Year
  Sex: Male
  Weight: 52.5 kg

DRUGS (2)
  1. TOBI PODHALER [Suspect]
     Indication: CYSTIC FIBROSIS
     Dosage: 112 MG, BID
     Route: 055
  2. TOBI PODHALER [Suspect]
     Dosage: 4CAP BID
     Route: 055
     Dates: end: 20131009

REACTIONS (3)
  - Chronic respiratory failure [Fatal]
  - Infective pulmonary exacerbation of cystic fibrosis [Fatal]
  - Sputum culture positive [Unknown]
